FAERS Safety Report 15597503 (Version 2)
Quarter: 2018Q4

REPORT INFORMATION
  Report Type: Spontaneous
  Country: RU (occurrence: RU)
  Receive Date: 20181108
  Receipt Date: 20181113
  Transmission Date: 20190205
  Serious: Yes (Death)
  Sender: FDA-Public Use
  Company Number: RU-ROCHE-2211061

PATIENT
  Age: 60 Year
  Sex: Male

DRUGS (7)
  1. CLEXANE [Concomitant]
     Active Substance: ENOXAPARIN SODIUM
  2. MEXIDOL [Concomitant]
  3. AMLODIPINE [Concomitant]
     Active Substance: AMLODIPINE BESYLATE
  4. ACTILYSE [Suspect]
     Active Substance: ALTEPLASE
     Indication: ISCHAEMIC STROKE
     Route: 042
     Dates: start: 20181009
  5. ATORVASTATIN [Concomitant]
     Active Substance: ATORVASTATIN
  6. PRESTARIUM [Concomitant]
     Active Substance: PERINDOPRIL
  7. CHOLINE ALFOSCERATE [Concomitant]
     Active Substance: CHOLINE ALFOSCERATE

REACTIONS (5)
  - Joint dislocation [Fatal]
  - Cardiac arrest [Fatal]
  - Brain oedema [Fatal]
  - Ischaemia [Fatal]
  - Drug ineffective [Fatal]

NARRATIVE: CASE EVENT DATE: 20181009
